FAERS Safety Report 4416540-5 (Version None)
Quarter: 2004Q2

REPORT INFORMATION
  Report Type: 
  Country: None (occurrence: None)
  Receive Date: 20040630
  Receipt Date: 20040604
  Transmission Date: 20050107
  Serious: Yes (Other)
  Sender: FDA-Public Use
  Company Number: ENTC2004-0105

PATIENT
  Age: 80 Year
  Sex: Male

DRUGS (1)
  1. STALEVO 100 [Suspect]
     Dosage: ORAL
     Route: 048

REACTIONS (2)
  - CHROMATURIA [None]
  - SALIVA DISCOLOURATION [None]
